FAERS Safety Report 5709750-8 (Version None)
Quarter: 2008Q2

REPORT INFORMATION
  Report Type: 
  Country: None (occurrence: None)
  Receive Date: 20080418
  Receipt Date: 20080407
  Transmission Date: 20081010
  Serious: Yes (Hospitalization, Other)
  Sender: FDA-Public Use
  Company Number: US-AMGEN-QUU271107

PATIENT
  Sex: Female

DRUGS (2)
  1. ENBREL [Suspect]
     Indication: RHEUMATOID ARTHRITIS
     Route: 058
     Dates: start: 20071001
  2. PLAVIX [Concomitant]

REACTIONS (5)
  - ADVERSE DRUG REACTION [None]
  - HEPATIC NEOPLASM [None]
  - MYOCARDIAL INFARCTION [None]
  - PALPITATIONS [None]
  - RHEUMATOID ARTHRITIS [None]
